FAERS Safety Report 5087970-6 (Version None)
Quarter: 2006Q3

REPORT INFORMATION
  Report Type: 
  Country: None (occurrence: None)
  Receive Date: 20060824
  Receipt Date: 20060818
  Transmission Date: 20061208
  Serious: Yes (Death)
  Sender: FDA-Public Use
  Company Number: US-JNJFOC-20060805026

PATIENT
  Age: 18 Year
  Sex: Male

DRUGS (4)
  1. ACETAMINOPHEN [Suspect]
  2. ACETAMINOPHEN [Suspect]
     Indication: DRUG USE FOR UNKNOWN INDICATION
     Dosage: DOSAGE UNKNOWN
  3. UNSPECIFIED PRESCRIPTION MEDICATIONS [Suspect]
     Indication: DRUG USE FOR UNKNOWN INDICATION
  4. UNSPECIFIED OTC MEDICATIONS [Suspect]
     Indication: DRUG USE FOR UNKNOWN INDICATION

REACTIONS (2)
  - DRUG TOXICITY [None]
  - INTENTIONAL DRUG MISUSE [None]
